FAERS Safety Report 23353414 (Version 2)
Quarter: 2024Q1

REPORT INFORMATION
  Report Type: Spontaneous
  Country: US (occurrence: US)
  Receive Date: 20231231
  Receipt Date: 20240121
  Transmission Date: 20240410
  Serious: No
  Sender: FDA-Public Use
  Company Number: US-JNJFOC-20231246901

PATIENT
  Sex: Female

DRUGS (2)
  1. TALVEY [Suspect]
     Active Substance: TALQUETAMAB-TGVS
     Indication: Product used for unknown indication
     Route: 065
  2. TECVAYLI [Suspect]
     Active Substance: TECLISTAMAB-CQYV
     Indication: Product used for unknown indication
     Route: 065

REACTIONS (8)
  - Skin exfoliation [Recovering/Resolving]
  - Dry mouth [Recovering/Resolving]
  - Ageusia [Recovering/Resolving]
  - Fatigue [Recovering/Resolving]
  - Depression [Recovering/Resolving]
  - Anxiety [Recovering/Resolving]
  - Gastrooesophageal reflux disease [Recovering/Resolving]
  - Adverse drug reaction [Unknown]
